FAERS Safety Report 12664206 (Version 1)
Quarter: 2016Q3

REPORT INFORMATION
  Report Type: Spontaneous
  Country: US (occurrence: US)
  Receive Date: 20160818
  Receipt Date: 20160818
  Transmission Date: 20161109
  Serious: No
  Sender: FDA-Public Use
  Company Number: US-MISSION PHARMACAL COMPANY-1056478

PATIENT
  Age: 39 Year
  Sex: Female

DRUGS (3)
  1. ANTIBIOTIC - UNSPECIFIED [Concomitant]
     Route: 065
  2. THIOLA [Suspect]
     Active Substance: TIOPRONIN
     Indication: NEPHROLITHIASIS
     Route: 065
     Dates: start: 20151115
  3. INHALER - UNSPECIFIED [Concomitant]
     Route: 065

REACTIONS (10)
  - Cough [Unknown]
  - Vomiting [Recovered/Resolved]
  - Aphonia [Unknown]
  - Pneumonia [None]
  - Chest discomfort [Unknown]
  - Drug dose omission [Unknown]
  - Back pain [Recovered/Resolved]
  - Pyrexia [Recovered/Resolved]
  - Dyspnoea [Unknown]
  - Malaise [Unknown]
